FAERS Safety Report 19645596 (Version 2)
Quarter: 2021Q3

REPORT INFORMATION
  Report Type: Spontaneous
  Country: AR (occurrence: AR)
  Receive Date: 20210802
  Receipt Date: 20210809
  Transmission Date: 20211014
  Serious: Yes (Other)
  Sender: FDA-Public Use
  Company Number: AR-AMGEN-ARGSP2021116710

PATIENT
  Age: 61 Year
  Sex: Female

DRUGS (1)
  1. ENBREL [Suspect]
     Active Substance: ETANERCEPT
     Indication: RHEUMATOID ARTHRITIS
     Dosage: 50 MILLIGRAM, QWK
     Route: 065
     Dates: start: 20180814

REACTIONS (6)
  - Pain in extremity [Unknown]
  - Malaise [Unknown]
  - Abdominal pain [Unknown]
  - Pain [Unknown]
  - Toxicity to various agents [Unknown]
  - Vomiting [Unknown]

NARRATIVE: CASE EVENT DATE: 20210429
